FAERS Safety Report 5080478-3 (Version None)
Quarter: 2006Q3

REPORT INFORMATION
  Report Type: 
  Country: None (occurrence: None)
  Receive Date: 20060815
  Receipt Date: 20001120
  Transmission Date: 20061208
  Serious: Yes (Hospitalization)
  Sender: FDA-Public Use
  Company Number: US-SOLVAY-00200006398

PATIENT
  Age: 24245 Day
  Sex: Male

DRUGS (2)
  1. PAXIL [Concomitant]
     Indication: DYSTHYMIC DISORDER
     Dosage: DAILY DOSE: 20 MG.
     Route: 048
     Dates: start: 20001103
  2. ACEON [Suspect]
     Indication: HYPERTENSION
     Dosage: DAILY DOSE: 4 MG.
     Route: 048
     Dates: start: 20000920, end: 20001107

REACTIONS (1)
  - CENTRAL NERVOUS SYSTEM LYMPHOMA [None]
